FAERS Safety Report 4520924-4 (Version None)
Quarter: 2004Q4

REPORT INFORMATION
  Report Type: 
  Country: None (occurrence: None)
  Receive Date: 20041206
  Receipt Date: 20041123
  Transmission Date: 20050328
  Serious: Yes (Life-Threatening, Hospitalization, Other)
  Sender: FDA-Public Use
  Company Number: HQWYE647723NOV04

PATIENT
  Age: 41 Year
  Sex: Female

DRUGS (2)
  1. INDERAL [Suspect]
     Indication: ANXIETY
     Dosage: ORAL
     Route: 048
  2. TETRALYSAL (LYMECYCLINE,) [Suspect]
     Indication: ROSACEA
     Dosage: ORAL
     Route: 048
     Dates: start: 20030716, end: 20040801

REACTIONS (4)
  - GRAND MAL CONVULSION [None]
  - HYPONATRAEMIA [None]
  - PNEUMONIA ASPIRATION [None]
  - VOMITING [None]
